FAERS Safety Report 7689451-X (Version None)
Quarter: 2011Q3

REPORT INFORMATION
  Report Type: 
  Country: None (occurrence: None)
  Receive Date: 20110817
  Receipt Date: 20110812
  Transmission Date: 20111222
  Serious: Yes (Death, Other)
  Sender: FDA-Public Use
  Company Number: US-PFIZER INC-2011092713

PATIENT
  Sex: Female

DRUGS (10)
  1. DIOVAN [Concomitant]
     Indication: HYPERTENSION
     Dosage: UNK
     Dates: start: 20060101, end: 20081230
  2. SERTRALINE [Concomitant]
     Indication: ANXIETY
  3. ZOLPIDEM [Concomitant]
     Indication: INSOMNIA
     Dosage: UNK
     Dates: start: 20060101, end: 20081230
  4. LORAZEPAM [Concomitant]
     Indication: POST-TRAUMATIC STRESS DISORDER
  5. SERTRALINE [Concomitant]
     Indication: DEPRESSION
     Dosage: UNK
     Dates: start: 20020101, end: 20081230
  6. TOPROL-XL [Concomitant]
     Indication: HYPERTENSION
     Dosage: UNK
     Dates: start: 20050101, end: 20081230
  7. CHANTIX [Suspect]
     Indication: SMOKING CESSATION THERAPY
     Dosage: VARENICLINE STARTER PACK. VARENICLINE 1.0MG CONTINUING PACKS
     Dates: start: 20080829, end: 20080901
  8. SERTRALINE [Concomitant]
     Indication: POST-TRAUMATIC STRESS DISORDER
  9. LORAZEPAM [Concomitant]
     Indication: DEPRESSION
     Dosage: UNK
     Dates: start: 20050101, end: 20081230
  10. LORAZEPAM [Concomitant]
     Indication: ANXIETY

REACTIONS (7)
  - COMPLETED SUICIDE [None]
  - ANXIETY [None]
  - INTENTIONAL SELF-INJURY [None]
  - AGGRESSION [None]
  - POST-TRAUMATIC STRESS DISORDER [None]
  - DEPRESSION [None]
  - PSYCHOTIC DISORDER [None]
